FAERS Safety Report 4744191-1 (Version None)
Quarter: 2005Q3

REPORT INFORMATION
  Report Type: 
  Country: None (occurrence: None)
  Receive Date: 20050810
  Receipt Date: 20050810
  Transmission Date: 20060218
  Serious: Yes (Life-Threatening)
  Sender: FDA-Public Use
  Company Number: None

PATIENT
  Sex: Male
  Weight: 77.1115 kg

DRUGS (1)
  1. CARAC [Suspect]
     Indication: PRECANCEROUS SKIN LESION
     Dosage: 2 TIMES DAILY

REACTIONS (11)
  - CHOKING [None]
  - CORNEAL DISORDER [None]
  - DRY EYE [None]
  - DRY MOUTH [None]
  - DRY SKIN [None]
  - DRY THROAT [None]
  - HEART RATE DECREASED [None]
  - HYPOAESTHESIA [None]
  - NASAL DRYNESS [None]
  - PULSE PRESSURE DECREASED [None]
  - TONGUE DRY [None]
